FAERS Safety Report 7947327-4 (Version None)
Quarter: 2011Q4

REPORT INFORMATION
  Report Type: 
  Country: None (occurrence: None)
  Receive Date: 20111130
  Receipt Date: 20111117
  Transmission Date: 20120403
  Serious: Yes (Hospitalization, Other)
  Sender: FDA-Public Use
  Company Number: KR-PAR PHARMACEUTICAL, INC-2011SCPR003431

PATIENT

DRUGS (6)
  1. MOXIFLOXACIN [Concomitant]
     Indication: PNEUMONIA
     Dosage: 400 MG, / DAY
     Route: 048
  2. CEFTRIAXONE [Concomitant]
     Indication: PNEUMONIA
     Dosage: 1000 MG, / DAY
     Route: 042
  3. METRONIDAZOLE [Suspect]
     Indication: PNEUMONIA
     Dosage: 1500 MG, / DAY
     Route: 065
  4. METRONIDAZOLE [Suspect]
     Indication: PLEURAL EFFUSION
  5. MOXIFLOXACIN [Concomitant]
     Indication: PLEURAL EFFUSION
  6. CEFTRIAXONE [Concomitant]
     Indication: PLEURAL EFFUSION

REACTIONS (4)
  - PARAESTHESIA [None]
  - TOXIC ENCEPHALOPATHY [None]
  - CENTRAL NERVOUS SYSTEM LESION [None]
  - DYSARTHRIA [None]
